FAERS Safety Report 5080865-3 (Version None)
Quarter: 2006Q3

REPORT INFORMATION
  Report Type: 
  Country: None (occurrence: None)
  Receive Date: 20060811
  Receipt Date: 20060731
  Transmission Date: 20061208
  Serious: Yes (Other)
  Sender: FDA-Public Use
  Company Number: 2006093070

PATIENT
  Age: 68 Year
  Sex: Female
  Weight: 79.8331 kg

DRUGS (2)
  1. AZULFIDINE [Suspect]
     Indication: RHEUMATOID ARTHRITIS
     Dosage: 1 GRAM (3 IN 1 D)
     Dates: start: 20051011, end: 20060425
  2. REMICADE [Suspect]
     Indication: RHEUMATOID ARTHRITIS
     Dosage: INTRAVENOUS
     Route: 042
     Dates: start: 20060425

REACTIONS (9)
  - ANAEMIA [None]
  - CATARACT OPERATION [None]
  - CONSTIPATION [None]
  - CYSTITIS [None]
  - DYSKINESIA [None]
  - EYE OPERATION [None]
  - INFECTION [None]
  - INFUSION RELATED REACTION [None]
  - RASH [None]
